FAERS Safety Report 23236212 (Version 1)
Quarter: 2023Q4

REPORT INFORMATION
  Report Type: Report from Study
  Country: US (occurrence: US)
  Receive Date: 20231128
  Receipt Date: 20231128
  Transmission Date: 20240109
  Serious: Yes (Other)
  Sender: FDA-Public Use
  Company Number: US-SUN PHARMACEUTICAL INDUSTRIES LTD-2023R1-420913

PATIENT
  Age: 35 Year
  Sex: Male

DRUGS (3)
  1. TEMOZOLOMIDE [Suspect]
     Active Substance: TEMOZOLOMIDE
     Indication: Glioma
     Dosage: 75 MILLIGRAM, QD
     Route: 065
  2. TEMOZOLOMIDE [Suspect]
     Active Substance: TEMOZOLOMIDE
     Dosage: 50 MILLIGRAM PER METRE SQUARE
     Route: 065
  3. OLAPARIB [Suspect]
     Active Substance: OLAPARIB
     Indication: Glioma
     Dosage: 150 MILLIGRAM, 3 X/WEEK
     Route: 065

REACTIONS (6)
  - Disease progression [Unknown]
  - Constipation [Unknown]
  - Fatigue [Unknown]
  - Leukopenia [Unknown]
  - Lymphopenia [Unknown]
  - Neutropenia [Unknown]
